FAERS Safety Report 7940168-3 (Version None)
Quarter: 2011Q4

REPORT INFORMATION
  Report Type: 
  Country: None (occurrence: None)
  Receive Date: 20111125
  Receipt Date: 20100705
  Transmission Date: 20120403
  Serious: Yes (Other)
  Sender: FDA-Public Use
  Company Number: PHHY2010BR092708

PATIENT

DRUGS (3)
  1. SIROLIMUS [Concomitant]
     Dosage: 6 MG, UNK
  2. STEROIDS NOS [Concomitant]
     Dosage: UNK UKN, UNK
  3. CYCLOSPORINE [Suspect]
     Indication: RENAL TRANSPLANT
     Dosage: 6-8 MG/KG IN DIVIDED DOSES (TWICE DAILY)

REACTIONS (1)
  - DYSLIPIDAEMIA [None]
